FAERS Safety Report 13698577 (Version 1)
Quarter: 2017Q2

REPORT INFORMATION
  Report Type: Spontaneous
  Country: US (occurrence: US)
  Receive Date: 20170628
  Receipt Date: 20170628
  Transmission Date: 20170830
  Serious: Yes (Death)
  Sender: FDA-Public Use
  Company Number: US-ARALEZ PHARMACEUTICALS RD INC.-ARA-TP-US-2017-704

PATIENT
  Age: 92 Year
  Sex: Male

DRUGS (1)
  1. TOPROL XL [Suspect]
     Active Substance: METOPROLOL SUCCINATE
     Indication: PRODUCT USED FOR UNKNOWN INDICATION
     Route: 065
     Dates: start: 2015, end: 20170615

REACTIONS (4)
  - Traumatic intracranial haemorrhage [Fatal]
  - Fall [Fatal]
  - Head injury [Fatal]
  - Death [Fatal]

NARRATIVE: CASE EVENT DATE: 20170615
